FAERS Safety Report 17160776 (Version 1)
Quarter: 2019Q4

REPORT INFORMATION
  Report Type: Spontaneous
  Country: DE (occurrence: DE)
  Receive Date: 20191216
  Receipt Date: 20191216
  Transmission Date: 20200122
  Serious: Yes (Other)
  Sender: FDA-Public Use
  Company Number: DE-ANIPHARMA-2019-DE-000179

PATIENT
  Age: 52 Year
  Sex: Female

DRUGS (2)
  1. ARIMIDEX [Suspect]
     Active Substance: ANASTROZOLE
     Indication: BREAST CANCER
     Dosage: UNK
     Route: 048
     Dates: start: 200803, end: 201009
  2. CIPRALEX [Concomitant]
     Active Substance: ESCITALOPRAM OXALATE
     Dosage: UNK
     Route: 065

REACTIONS (16)
  - Dry mouth [Unknown]
  - Depression [Unknown]
  - Metastases to lymph nodes [Unknown]
  - Drug intolerance [Unknown]
  - Lymphadenopathy [Unknown]
  - Weight increased [Unknown]
  - Listless [Unknown]
  - Fatigue [Unknown]
  - Hot flush [Unknown]
  - Malaise [Unknown]
  - Metastases to lung [Unknown]
  - Metastases to bone [Unknown]
  - Pancreatic mass [Unknown]
  - Arthralgia [Unknown]
  - Alopecia [Unknown]
  - Metastases to abdominal wall [Unknown]

NARRATIVE: CASE EVENT DATE: 200804
